FAERS Safety Report 11223221 (Version 1)
Quarter: 2015Q2

REPORT INFORMATION
  Report Type: Spontaneous
  Country: US (occurrence: US)
  Receive Date: 20150626
  Receipt Date: 20150626
  Transmission Date: 20150821
  Serious: Yes (Other)
  Sender: FDA-Public Use
  Company Number: US-AMEDRA PHARMACEUTICALS LLC-2015AMD00103

PATIENT
  Age: 29 Year
  Sex: Female

DRUGS (3)
  1. SUPER-SATURATED POTASSIUM IODIDE [Concomitant]
     Dosage: UNK, 1X/DAY
  2. HYDROCORTISONE. [Suspect]
     Active Substance: HYDROCORTISONE
     Indication: PROPHYLAXIS
     Dosage: 50 MG, EVERY 8 HOURS
     Route: 042
  3. PROPYLTHIOURACIL. [Concomitant]
     Active Substance: PROPYLTHIOURACIL

REACTIONS (6)
  - Electrocardiogram QT prolonged [None]
  - Hypomagnesaemia [None]
  - Premature separation of placenta [Recovered/Resolved]
  - Caesarean section [None]
  - Maternal exposure during pregnancy [None]
  - Umbilical cord prolapse [Recovered/Resolved]
